FAERS Safety Report 9549793 (Version 2)
Quarter: 2013Q4

REPORT INFORMATION
  Report Type: Spontaneous
  Country: FR (occurrence: FR)
  Receive Date: 20130924
  Receipt Date: 20131011
  Transmission Date: 20140711
  Serious: Yes (Other)
  Sender: FDA-Public Use
  Company Number: FR-B.I. PHARMACEUTICALS,INC./RIDGEFIELD-2013-FF-02360FF

PATIENT
  Age: 68 Year
  Sex: Female

DRUGS (6)
  1. PRADAXA [Suspect]
     Indication: ATRIAL FIBRILLATION
     Dosage: 300 MG
     Route: 048
     Dates: start: 20130207, end: 20130822
  2. PRADAXA [Suspect]
     Dosage: 300 MG
     Route: 048
     Dates: start: 20130826
  3. ATACAND [Concomitant]
     Dosage: 4 MG
     Route: 048
  4. LASILIX [Concomitant]
     Dosage: 40 MG
     Route: 048
  5. BISOPROLOL [Concomitant]
  6. DIFFU K [Concomitant]

REACTIONS (2)
  - Ischaemic stroke [Recovered/Resolved with Sequelae]
  - Clumsiness [Not Recovered/Not Resolved]
